FAERS Safety Report 14572645 (Version 1)
Quarter: 2018Q1

REPORT INFORMATION
  Report Type: Spontaneous
  Country: US (occurrence: US)
  Receive Date: 20180226
  Receipt Date: 20180226
  Transmission Date: 20180509
  Serious: No
  Sender: FDA-Public Use
  Company Number: US-MISSION PHARMACAL COMPANY-2042551

PATIENT
  Age: 24 Year
  Sex: Female

DRUGS (3)
  1. UROCIT-K [Concomitant]
     Active Substance: POTASSIUM CITRATE
     Route: 065
  2. THIOLA [Suspect]
     Active Substance: TIOPRONIN
     Indication: CYSTINURIA
     Route: 065
     Dates: start: 20171020
  3. SODIUM BICARBONATE. [Concomitant]
     Active Substance: SODIUM BICARBONATE
     Route: 065

REACTIONS (5)
  - Pruritus [Unknown]
  - Rash [Unknown]
  - Drug dose omission [Unknown]
  - Drug ineffective [Unknown]
  - Incorrect dose administered [Unknown]
